FAERS Safety Report 7750546-3 (Version None)
Quarter: 2011Q3

REPORT INFORMATION
  Report Type: 
  Country: None (occurrence: None)
  Receive Date: 20110914
  Receipt Date: 20110906
  Transmission Date: 20111222
  Serious: Yes (Hospitalization)
  Sender: FDA-Public Use
  Company Number: US-UCBSA-040751

PATIENT
  Age: 32 Year
  Sex: Female

DRUGS (1)
  1. CIMZIA [Suspect]
     Indication: CROHN'S DISEASE
     Dosage: STRENGTH: 200MG
     Route: 058
     Dates: start: 20100406, end: 20110902

REACTIONS (1)
  - FUNGAL OESOPHAGITIS [None]
